FAERS Safety Report 9665504 (Version 1)
Quarter: 2013Q4

REPORT INFORMATION
  Report Type: Spontaneous
  Country: US (occurrence: US)
  Receive Date: 20131104
  Receipt Date: 20131104
  Transmission Date: 20140711
  Serious: No
  Sender: FDA-Public Use
  Company Number: US-PFIZER INC-2013312043

PATIENT
  Age: 61 Year
  Sex: Female
  Weight: 72.56 kg

DRUGS (2)
  1. VENLAFAXINE HCL [Suspect]
     Indication: PANIC ATTACK
     Dosage: 150 MG, DAILY
     Dates: start: 2013
  2. CONCERTA [Concomitant]
     Indication: ATTENTION DEFICIT/HYPERACTIVITY DISORDER
     Dosage: UNK

REACTIONS (4)
  - Abnormal dreams [Unknown]
  - Anxiety [Unknown]
  - Irritability [Unknown]
  - Food craving [Unknown]
